FAERS Safety Report 23879715 (Version 1)
Quarter: 2024Q2

REPORT INFORMATION
  Report Type: Spontaneous
  Country: US (occurrence: US)
  Receive Date: 20240521
  Receipt Date: 20240521
  Transmission Date: 20240716
  Serious: No
  Sender: FDA-Public Use
  Company Number: US-ASTELLAS-2024US005423

PATIENT
  Age: 62 Year
  Sex: Female

DRUGS (3)
  1. VEOZAH [Suspect]
     Active Substance: FEZOLINETANT
     Indication: Hot flush
     Route: 065
     Dates: start: 202310
  2. VEOZAH [Suspect]
     Active Substance: FEZOLINETANT
     Dosage: UNK UNK(1/2 TABLET), ONCE DAILY
     Route: 065
  3. VEOZAH [Suspect]
     Active Substance: FEZOLINETANT
     Dosage: UNK UNK(1/4 TABLET), ONCE DAILY
     Route: 065
     Dates: end: 202310

REACTIONS (2)
  - Dizziness [Not Recovered/Not Resolved]
  - Wrong technique in product usage process [Unknown]
